FAERS Safety Report 24560631 (Version 1)
Quarter: 2024Q4

REPORT INFORMATION
  Report Type: Spontaneous
  Country: CA (occurrence: CA)
  Receive Date: 20241029
  Receipt Date: 20241029
  Transmission Date: 20250115
  Serious: Yes (Other)
  Sender: ALEXION PHARMACEUTICALS
  Company Number: None

PATIENT

DRUGS (6)
  1. ROSUVASTATIN [Suspect]
     Active Substance: ROSUVASTATIN
     Indication: Arteriosclerosis
     Dosage: 5 MILLIGRAM
  2. ROSUVASTATIN [Suspect]
     Active Substance: ROSUVASTATIN
     Dosage: 5 MILLIGRAM
  3. ROSUVASTATIN [Suspect]
     Active Substance: ROSUVASTATIN
     Dosage: 5 MILLIGRAM
  4. ROSUVASTATIN [Suspect]
     Active Substance: ROSUVASTATIN
     Dosage: 5 MILLIGRAM
  5. LEQVIO [Suspect]
     Active Substance: INCLISIRAN SODIUM
     Indication: Arteriosclerosis
  6. LEQVIO [Suspect]
     Active Substance: INCLISIRAN SODIUM
     Route: 065

REACTIONS (7)
  - Arthritis [Unknown]
  - Diabetes mellitus [Unknown]
  - Hypersensitivity [Unknown]
  - Malaise [Unknown]
  - Mental disorder [Unknown]
  - Pain [Unknown]
  - Product use in unapproved indication [Unknown]
